FAERS Safety Report 14585559 (Version 4)
Quarter: 2018Q4

REPORT INFORMATION
  Report Type: Spontaneous
  Country: US (occurrence: US)
  Receive Date: 20180301
  Receipt Date: 20181112
  Transmission Date: 20190204
  Serious: No
  Sender: FDA-Public Use
  Company Number: US-PFIZER INC-2016298160

PATIENT
  Age: 52 Year
  Sex: Male

DRUGS (1)
  1. EFFEXOR XR [Suspect]
     Active Substance: VENLAFAXINE HYDROCHLORIDE
     Dosage: 300 MG, DAILY (150 MG CAPSULE; QUANTITY=60; DAY SUPPLY=30)

REACTIONS (2)
  - Prescribed overdose [Unknown]
  - Withdrawal syndrome [Unknown]
